FAERS Safety Report 5733767-0 (Version None)
Quarter: 2008Q2

REPORT INFORMATION
  Report Type: 
  Country: None (occurrence: None)
  Receive Date: 20080509
  Receipt Date: 20080506
  Transmission Date: 20081010
  Serious: Yes (Hospitalization)
  Sender: FDA-Public Use
  Company Number: US-ASTRAZENECA-2008UW05938

PATIENT
  Age: 56 Year
  Sex: Female
  Weight: 52 kg

DRUGS (10)
  1. ATENOLOL [Suspect]
     Indication: BLOOD PRESSURE INCREASED
     Route: 048
     Dates: start: 20060910, end: 20061231
  2. ATENOLOL [Suspect]
     Route: 048
     Dates: start: 20070104
  3. PF-3512676 [Suspect]
     Indication: NON-SMALL CELL LUNG CANCER STAGE IV
     Dosage: 10.8 MG ON DAYS 8 AND 15 OF 21-DAY CYCLE
     Route: 058
     Dates: start: 20061228, end: 20070125
  4. TAXOL [Suspect]
     Indication: NON-SMALL CELL LUNG CANCER STAGE IV
     Dosage: 237 MG ON DAY 1 OF 21-DAY CYCLE
     Route: 042
     Dates: start: 20061221, end: 20070201
  5. CARBOPLATIN [Suspect]
     Indication: NON-SMALL CELL LUNG CANCER STAGE IV
     Dosage: 450 MG ON DAY 1 OF 21-DAY
     Dates: start: 20061221, end: 20070201
  6. DIOVAN HCT [Concomitant]
     Indication: HYPERTENSION
     Dosage: 160/25 1/2 TAB
     Route: 048
     Dates: start: 20060910, end: 20061231
  7. NORVASC [Concomitant]
     Indication: HYPERTENSION
     Dates: start: 20060910, end: 20061231
  8. LORTAB [Concomitant]
     Dosage: 7.5/500 MG EVERY 6 HOURS AS NEEDED
     Route: 048
     Dates: start: 20061120
  9. PREMARIN [Concomitant]
     Indication: MENOPAUSAL SYMPTOMS
     Route: 048
     Dates: start: 20060618, end: 20070104
  10. OXYCODONE HCL [Concomitant]
     Indication: BACK PAIN
     Route: 048
     Dates: start: 20050618

REACTIONS (3)
  - HYPOTENSION [None]
  - NEUTROPENIA [None]
  - SYNCOPE [None]
